FAERS Safety Report 9434308 (Version 1)
Quarter: 2013Q3

REPORT INFORMATION
  Report Type: Spontaneous
  Country: IT (occurrence: IT)
  Receive Date: 20130801
  Receipt Date: 20130801
  Transmission Date: 20140515
  Serious: Yes (Hospitalization)
  Sender: FDA-Public Use
  Company Number: IT-UCBSA-093314

PATIENT
  Age: 53 Year
  Sex: Male

DRUGS (3)
  1. MONOKET [Suspect]
     Indication: MICROVASCULAR CORONARY ARTERY DISEASE
     Dosage: 40 MG DAILY
     Route: 048
     Dates: start: 20130703, end: 20130703
  2. PLAVIX [Concomitant]
     Dosage: 75 MG
  3. DILTIAZEM [Concomitant]
     Dates: start: 20130701, end: 20130717

REACTIONS (1)
  - Anaphylactic shock [Recovered/Resolved]
